FAERS Safety Report 7683803-X (Version None)
Quarter: 2011Q3

REPORT INFORMATION
  Report Type: 
  Country: None (occurrence: None)
  Receive Date: 20110815
  Receipt Date: 20110804
  Transmission Date: 20111222
  Serious: Yes (Other)
  Sender: FDA-Public Use
  Company Number: CA-JNJFOC-20110804755

PATIENT
  Sex: Female

DRUGS (2)
  1. REMICADE [Suspect]
     Indication: PRODUCT USED FOR UNKNOWN INDICATION
     Route: 042
     Dates: start: 20110701
  2. REMICADE [Suspect]
     Route: 042

REACTIONS (3)
  - GLOSSODYNIA [None]
  - OROPHARYNGEAL PAIN [None]
  - DEAFNESS [None]
